FAERS Safety Report 23090171 (Version 1)
Quarter: 2023Q4

REPORT INFORMATION
  Report Type: Spontaneous
  Country: HK (occurrence: None)
  Receive Date: 20231020
  Receipt Date: 20231020
  Transmission Date: 20240110
  Serious: Yes (Other)
  Sender: FDA-Public Use
  Company Number: HK-ROCHE-3440527

PATIENT
  Sex: Male

DRUGS (14)
  1. RITUXIMAB [Suspect]
     Active Substance: RITUXIMAB
     Indication: Lymphoma transformation
     Route: 065
     Dates: start: 20221101, end: 20230201
  2. RITUXIMAB [Suspect]
     Active Substance: RITUXIMAB
     Route: 065
     Dates: start: 20230701, end: 20230801
  3. RITUXIMAB [Suspect]
     Active Substance: RITUXIMAB
     Route: 065
     Dates: start: 20230901, end: 20231001
  4. CYCLOPHOSPHAMIDE [Suspect]
     Active Substance: CYCLOPHOSPHAMIDE
     Indication: Lymphoma transformation
     Route: 065
     Dates: start: 20221101, end: 20230201
  5. DOXORUBICIN [Suspect]
     Active Substance: DOXORUBICIN
     Indication: Lymphoma transformation
     Route: 065
     Dates: start: 20221101, end: 20230201
  6. VINCRISTINE [Suspect]
     Active Substance: VINCRISTINE
     Indication: Lymphoma transformation
     Route: 065
     Dates: start: 20221101, end: 20230201
  7. PREDNISONE [Suspect]
     Active Substance: PREDNISONE
     Indication: Lymphoma transformation
     Route: 065
     Dates: start: 20221101, end: 20230201
  8. GAZYVA [Suspect]
     Active Substance: OBINUTUZUMAB
     Indication: Lymphoma transformation
     Route: 042
     Dates: start: 20230601, end: 20230701
  9. LENALIDOMIDE [Suspect]
     Active Substance: LENALIDOMIDE
     Indication: Lymphoma transformation
     Route: 065
     Dates: start: 20230601, end: 20230701
  10. IFOSFAMIDE [Suspect]
     Active Substance: IFOSFAMIDE
     Indication: Lymphoma transformation
     Route: 065
     Dates: start: 20230701, end: 20230801
  11. CARBOPLATIN [Suspect]
     Active Substance: CARBOPLATIN
     Indication: Lymphoma transformation
     Route: 065
     Dates: start: 20230701, end: 20230801
  12. ETOPOSIDE [Suspect]
     Active Substance: ETOPOSIDE
     Indication: Lymphoma transformation
     Route: 065
     Dates: start: 20230701, end: 20230801
  13. POLIVY [Suspect]
     Active Substance: POLATUZUMAB VEDOTIN-PIIQ
     Indication: Lymphoma transformation
     Route: 065
     Dates: start: 20230901, end: 20231001
  14. BENDAMUSTINE [Suspect]
     Active Substance: BENDAMUSTINE
     Indication: Lymphoma transformation
     Route: 065
     Dates: start: 20230901, end: 20231001

REACTIONS (4)
  - Disease progression [Unknown]
  - Thrombocytopenia [Unknown]
  - Toxicity to various agents [Unknown]
  - Diabetic ketoacidosis [Unknown]
